FAERS Safety Report 12111415 (Version 1)
Quarter: 2016Q1

REPORT INFORMATION
  Report Type: Spontaneous
  Country: US (occurrence: US)
  Receive Date: 20160224
  Receipt Date: 20160224
  Transmission Date: 20160526
  Serious: Yes (Other)
  Sender: FDA-Public Use
  Company Number: PHHY2016US022187

PATIENT
  Age: 1 Day
  Sex: Female

DRUGS (2)
  1. VINBLASTINE [Suspect]
     Active Substance: VINBLASTINE
     Indication: FIBROMATOSIS
     Dosage: 0.15 MG/KG, QW
     Route: 042
  2. METHOTREXATE [Suspect]
     Active Substance: METHOTREXATE
     Indication: FIBROMATOSIS
     Dosage: 1 MG/KG, QW
     Route: 042

REACTIONS (2)
  - Cholestasis [Recovered/Resolved]
  - Small intestinal obstruction [Unknown]
